FAERS Safety Report 26058579 (Version 1)
Quarter: 2025Q4

REPORT INFORMATION
  Report Type: Spontaneous
  Country: GB (occurrence: GB)
  Receive Date: 20251118
  Receipt Date: 20251118
  Transmission Date: 20260118
  Serious: Yes (Life-Threatening, Disabling, Other)
  Sender: TEVA
  Company Number: None

PATIENT
  Age: 78 Year
  Sex: Male
  Weight: 71 kg

DRUGS (2)
  1. ELTROMBOPAG [Suspect]
     Active Substance: ELTROMBOPAG
     Indication: Platelet count decreased
     Dosage: ALTERNATE DAYS
     Route: 065
     Dates: end: 20240207
  2. DALTEPARIN [Suspect]
     Active Substance: DALTEPARIN
     Indication: Product used for unknown indication
     Route: 065

REACTIONS (6)
  - Movement disorder [Unknown]
  - Cerebrovascular accident [Unknown]
  - Feeding disorder [Unknown]
  - Incoherent [Unknown]
  - Speech disorder [Unknown]
  - Hallucination [Unknown]
